FAERS Safety Report 14698521 (Version 4)
Quarter: 2018Q2

REPORT INFORMATION
  Report Type: Report from Study
  Country: FR (occurrence: FR)
  Receive Date: 20180330
  Receipt Date: 20180522
  Transmission Date: 20180711
  Serious: Yes (Hospitalization)
  Sender: FDA-Public Use
  Company Number: FR-ROCHE-2091782

PATIENT
  Age: 52 Year
  Sex: Male
  Weight: 73 kg

DRUGS (10)
  1. ATEZOLIZUMAB. [Suspect]
     Active Substance: ATEZOLIZUMAB
     Indication: PANCREATIC CARCINOMA METASTATIC
     Dosage: THAT WAS ALSO THE MOST RECENT DOSE THE PATIENT RECEIVED PRIOR TO THE ADVERSE EVENTS ONSET.?ON 25/APR
     Route: 042
     Dates: start: 20180314
  2. SKENAN [Concomitant]
     Active Substance: MORPHINE SULFATE
  3. MACROGOL [Concomitant]
     Active Substance: POLYETHYLENE GLYCOLS
  4. OXYCONTIN [Concomitant]
     Active Substance: OXYCODONE HYDROCHLORIDE
     Route: 065
  5. ACTISKENAN [Concomitant]
     Active Substance: MORPHINE SULFATE
     Route: 065
  6. LISINOPRIL. [Concomitant]
     Active Substance: LISINOPRIL
  7. JAMYLENE [Concomitant]
     Active Substance: DOCUSATE SODIUM
     Route: 065
     Dates: start: 20180313
  8. DEXAMETHASONE. [Concomitant]
     Active Substance: DEXAMETHASONE
     Indication: PREMEDICATION
     Route: 065
  9. RO 6958688 (T-CELL BISPECIFIC MONOCLONAL ANTIBODY) [Suspect]
     Active Substance: INVESTIGATIONAL PRODUCT
     Indication: PANCREATIC CARCINOMA METASTATIC
     Dosage: THAT WAS ALSO THE MOST RECENT DOSE THE PATIENT RECEIVED PRIOR TO THE ADVERSE EVENTS ONSET?ON 25/APR/
     Route: 042
     Dates: start: 20180314
  10. PRIMPERAN [Concomitant]
     Active Substance: METOCLOPRAMIDE HYDROCHLORIDE
     Route: 065

REACTIONS (4)
  - Infusion related reaction [Recovered/Resolved]
  - Blood bilirubin increased [Recovered/Resolved]
  - Aspartate aminotransferase increased [Recovered/Resolved]
  - Alanine aminotransferase increased [Recovered/Resolved]

NARRATIVE: CASE EVENT DATE: 20180314
